FAERS Safety Report 22750689 (Version 2)
Quarter: 2023Q4

REPORT INFORMATION
  Report Type: Spontaneous
  Country: CA (occurrence: None)
  Receive Date: 20230726
  Receipt Date: 20231129
  Transmission Date: 20240109
  Serious: Yes (Hospitalization, Other)
  Sender: FDA-Public Use
  Company Number: CA-AMGEN-CANSP2023126238

PATIENT
  Age: 23 Year
  Sex: Female

DRUGS (13)
  1. METHOTREXATE [Suspect]
     Active Substance: METHOTREXATE
     Indication: Product used for unknown indication
  2. ENBREL [Suspect]
     Active Substance: ETANERCEPT
     Indication: Product used for unknown indication
  3. ACTEMRA [Suspect]
     Active Substance: TOCILIZUMAB
     Indication: Juvenile idiopathic arthritis
     Dosage: 424 MILLIGRAM, Q4WK
  4. ACTEMRA [Suspect]
     Active Substance: TOCILIZUMAB
     Dosage: 400 MILLIGRAM, Q4WK
  5. ARAVA [Concomitant]
     Active Substance: LEFLUNOMIDE
  6. ESOMEPRAZOLE MAGNESIUM [Concomitant]
     Active Substance: ESOMEPRAZOLE\ESOMEPRAZOLE MAGNESIUM\ESOMEPRAZOLE MAGNESIUM DIHYDRATE
  7. HYDROXYCHLOROQUINE SULFATE [Concomitant]
     Active Substance: HYDROXYCHLOROQUINE SULFATE
  8. HYDROXYCHLOROQUINE SULFATE [Concomitant]
     Active Substance: HYDROXYCHLOROQUINE SULFATE
  9. NAPROXEN [Concomitant]
     Active Substance: NAPROXEN
  10. PREDNISONE [Concomitant]
     Active Substance: PREDNISONE
  11. QUETIAPINE FUMARATE [Concomitant]
     Active Substance: QUETIAPINE FUMARATE
  12. SULFASALAZINE [Concomitant]
     Active Substance: SULFASALAZINE
  13. ESOMEPRAZOLE MAGNESIUM [Concomitant]
     Active Substance: ESOMEPRAZOLE\ESOMEPRAZOLE MAGNESIUM\ESOMEPRAZOLE MAGNESIUM DIHYDRATE

REACTIONS (8)
  - Arthritis [Recovered/Resolved]
  - C-reactive protein increased [Recovered/Resolved]
  - Drug intolerance [Recovered/Resolved]
  - Osteonecrosis [Recovered/Resolved]
  - Platelet count increased [Recovered/Resolved]
  - Substance-induced psychotic disorder [Recovered/Resolved]
  - Synovitis [Recovered/Resolved]
  - Arthralgia [Recovered/Resolved]
